FAERS Safety Report 9067804 (Version 1)
Quarter: 2013Q1

REPORT INFORMATION
  Report Type: Report from Study
  Country: AU (occurrence: AU)
  Receive Date: 20130128
  Receipt Date: 20130128
  Transmission Date: 20140127
  Serious: Yes (Other)
  Sender: FDA-Public Use
  Company Number: AU-ROCHE-1183797

PATIENT
  Sex: Female

DRUGS (4)
  1. ACTEMRA [Suspect]
     Indication: RHEUMATOID ARTHRITIS
     Route: 042
     Dates: start: 20091008
  2. CRESTOR [Concomitant]
     Indication: BLOOD CHOLESTEROL INCREASED
     Dosage: STARTED 1 YEAR AGO
     Route: 048
  3. NEXIUM [Concomitant]
     Dosage: STARTED 4/5 YEAR AGO
     Route: 048
  4. MICARDIS [Concomitant]
     Indication: BLOOD PRESSURE INCREASED
     Dosage: STARTED 6/8 MONTHS AGO
     Route: 048

REACTIONS (1)
  - Cataract [Unknown]
